FAERS Safety Report 9055197 (Version 1)
Quarter: 2013Q1

REPORT INFORMATION
  Report Type: Spontaneous
  Country: US (occurrence: US)
  Receive Date: 20130206
  Receipt Date: 20130206
  Transmission Date: 20140127
  Serious: Yes (Other)
  Sender: FDA-Public Use
  Company Number: US-PFIZER INC-2013042768

PATIENT
  Sex: Female

DRUGS (8)
  1. XANAX [Suspect]
     Dosage: UNK
  2. CIPROFLOXACIN [Suspect]
     Dosage: UNK
  3. CIMETIDINE [Suspect]
     Dosage: UNK
  4. FLUDROCORTISONE ACETATE [Suspect]
     Dosage: UNK
  5. LEVAQUIN [Suspect]
     Dosage: UNK
  6. ELMIRON [Suspect]
     Dosage: UNK
  7. RANITIDINE [Suspect]
     Dosage: UNK
  8. ROFECOXIB [Suspect]
     Dosage: UNK

REACTIONS (1)
  - Drug hypersensitivity [Unknown]
